FAERS Safety Report 10076022 (Version 3)
Quarter: 2014Q2

REPORT INFORMATION
  Report Type: Spontaneous
  Country: US (occurrence: US)
  Receive Date: 20140414
  Receipt Date: 20140527
  Transmission Date: 20141212
  Serious: Yes (Hospitalization, Other)
  Sender: FDA-Public Use
  Company Number: US-NOVOPROD-406168

PATIENT
  Age: 21 Year
  Sex: Male
  Weight: 61 kg

DRUGS (6)
  1. NOVOSEVEN RT [Suspect]
     Indication: FACTOR VIII DEFICIENCY
     Dosage: UNKNOWN
     Route: 042
     Dates: start: 2006, end: 2013
  2. NOVOSEVEN RT [Suspect]
     Dosage: 100?G/KG TO 150?G/KG X 3 DOSES OVER 2 HOURS PER BLEED
     Route: 042
     Dates: start: 2013, end: 201403
  3. NOVOSEVEN RT [Suspect]
     Dosage: 120?G/KG X 1 DOSE PLUS 90?G/KG X 2 DOSES OVER 2 HOURS PER BLEED AS NEEDED
     Route: 042
     Dates: start: 20140416
  4. OXYCONTIN [Concomitant]
     Indication: PRODUCT USED FOR UNKNOWN INDICATION
     Dosage: 30 MG, Q8HRS LONG TERM, HELD DURING ADMISSION
  5. FLEXERIL                           /00428402/ [Concomitant]
     Indication: PRODUCT USED FOR UNKNOWN INDICATION
     Dosage: UNKNOWN
     Dates: start: 20140416
  6. SENOKOT                            /00142201/ [Concomitant]
     Indication: PRODUCT USED FOR UNKNOWN INDICATION
     Dosage: LONG TERM

REACTIONS (4)
  - Haemothorax [Recovered/Resolved]
  - Renal failure acute [Recovered/Resolved]
  - Deep vein thrombosis [Recovered/Resolved]
  - Deep vein thrombosis [Recovered/Resolved]
